FAERS Safety Report 8512926-8 (Version None)
Quarter: 2012Q3

REPORT INFORMATION
  Report Type: 
  Country: None (occurrence: None)
  Receive Date: 20120716
  Receipt Date: 20120706
  Transmission Date: 20120928
  Serious: Yes (Hospitalization, Other)
  Sender: FDA-Public Use
  Company Number: IT-ELI_LILLY_AND_COMPANY-IT201207002591

PATIENT
  Sex: Male

DRUGS (6)
  1. ASPIRIN [Concomitant]
     Dosage: 1 DF, UNK
     Route: 048
  2. CIALIS [Suspect]
     Dosage: 1 DF, UNK
     Route: 048
     Dates: start: 20120703, end: 20120703
  3. TAMSULOSIN HYDROCHLORIDE [Concomitant]
     Indication: BENIGN PROSTATIC HYPERPLASIA
     Dosage: 1 DF, QD
     Route: 048
     Dates: start: 20120702, end: 20120704
  4. LIPITOR [Concomitant]
     Dosage: 1 DF, UNK
     Route: 048
  5. HIZAAR [Concomitant]
     Dosage: 1 DF, UNK
     Route: 048
  6. DIGOXIN [Concomitant]
     Indication: CARDIAC FAILURE
     Dosage: .25 MG, QD
     Route: 048
     Dates: start: 20120703, end: 20120704

REACTIONS (5)
  - SYNCOPE [None]
  - HYPERHIDROSIS [None]
  - HYPOTENSION [None]
  - HIATUS HERNIA [None]
  - PALLOR [None]
